FAERS Safety Report 5918560-8 (Version None)
Quarter: 2008Q4

REPORT INFORMATION
  Report Type: 
  Country: None (occurrence: None)
  Receive Date: 20081014
  Receipt Date: 20081014
  Transmission Date: 20090506
  Serious: No
  Sender: FDA-Public Use
  Company Number: None

PATIENT
  Age: 4 Year
  Sex: Male
  Weight: 6.804 kg

DRUGS (1)
  1. GADOPENTETATE DIMEGLUMINE RT AC 24G BAYER [Suspect]
     Indication: NUCLEAR MAGNETIC RESONANCE IMAGING
     Dosage: 4MLS OTO IV BOLUS
     Route: 040
     Dates: start: 20081006, end: 20081006

REACTIONS (4)
  - ERYTHEMA [None]
  - HEART RATE INCREASED [None]
  - PERIORBITAL OEDEMA [None]
  - VOMITING [None]
